APPROVED DRUG PRODUCT: PARLODEL
Active Ingredient: BROMOCRIPTINE MESYLATE
Strength: EQ 5MG BASE **Federal Register determination that product was not discontinued or withdrawn for safety or effectiveness reasons**
Dosage Form/Route: CAPSULE;ORAL
Application: N017962 | Product #002 | TE Code: AB
Applicant: ESJAY PHARMA LLC
Approved: Mar 1, 1982 | RLD: Yes | RS: No | Type: RX